FAERS Safety Report 9212862 (Version 1)
Quarter: 2013Q1

REPORT INFORMATION
  Report Type: Spontaneous
  Country: US (occurrence: None)
  Receive Date: 20120820
  Receipt Date: 20120820
  Transmission Date: 20140127
  Serious: No
  Sender: FDA-Public Use
  Company Number: 1000031497

PATIENT
  Age: 64 Year
  Sex: Female

DRUGS (5)
  1. VIIBRYD [Suspect]
     Indication: DEPRESSION
     Dosage: 2.5 MG 1 IN 1 D
     Route: 048
     Dates: start: 20120525, end: 20120531
  2. SYNTHROID (LEVOTHYROXINE SODIUM) (LEVOTHYROXINE SODIUM) [Concomitant]
  3. ATIVAN (LORAZEPAM) (LORAZEPAM) [Concomitant]
  4. PROPANOLOL (PROPANOLOL) (PROPANOLOL) [Concomitant]
  5. ACIPHEX (RABEPRAZOLE SODIUM) (RABEPRAZOLE SODIUM) [Concomitant]

REACTIONS (3)
  - Hunger [None]
  - Blood glucose decreased [None]
  - Palpitations [None]
